FAERS Safety Report 10165680 (Version 1)
Quarter: 2014Q2

REPORT INFORMATION
  Report Type: Spontaneous
  Country: US (occurrence: US)
  Receive Date: 20140510
  Receipt Date: 20140510
  Transmission Date: 20141212
  Serious: No
  Sender: FDA-Public Use
  Company Number: US-BRISTOL-MYERS SQUIBB COMPANY-19886050

PATIENT
  Age: 67 Year
  Sex: Male
  Weight: 73.01 kg

DRUGS (2)
  1. BYDUREON 2MG VIAL + SYRINGE [Suspect]
     Indication: TYPE 2 DIABETES MELLITUS
     Dates: start: 20130821
  2. METFORMIN [Concomitant]
     Route: 048

REACTIONS (4)
  - Injection site nodule [Recovering/Resolving]
  - Nausea [Not Recovered/Not Resolved]
  - Weight increased [Unknown]
  - Vomiting [Not Recovered/Not Resolved]
